FAERS Safety Report 9709728 (Version 2)
Quarter: 2013Q4

REPORT INFORMATION
  Report Type: Report from Study
  Country: CO (occurrence: CO)
  Receive Date: 20131126
  Receipt Date: 20131226
  Transmission Date: 20140711
  Serious: Yes (Hospitalization)
  Sender: FDA-Public Use
  Company Number: CO-ROCHE-1306809

PATIENT
  Age: 31 Year
  Sex: Male

DRUGS (2)
  1. MIRCERA [Suspect]
     Indication: ANAEMIA
     Route: 058
     Dates: start: 20130726
  2. MIRCERA [Suspect]
     Indication: RENAL FAILURE CHRONIC

REACTIONS (2)
  - Anaemia [Recovered/Resolved]
  - Sepsis [Recovered/Resolved]
